FAERS Safety Report 17064243 (Version 1)
Quarter: 2019Q4

REPORT INFORMATION
  Report Type: Spontaneous
  Country: US (occurrence: US)
  Receive Date: 20191023
  Receipt Date: 20191023
  Transmission Date: 20200122
  Serious: No
  Sender: FDA-Public Use
  Company Number: None

PATIENT
  Age: 81 Year
  Sex: Male
  Weight: 83.91 kg

DRUGS (11)
  1. TUMERIC [Concomitant]
     Active Substance: HERBALS\TURMERIC
  2. ATORVASTATIN [Concomitant]
     Active Substance: ATORVASTATIN
  3. ASPIRIN. [Concomitant]
     Active Substance: ASPIRIN
  4. TRAZODONE [Concomitant]
     Active Substance: TRAZODONE HYDROCHLORIDE
  5. GLUCOSIMINE CONDROITIN [Concomitant]
  6. AMIODARONE [Suspect]
     Active Substance: AMIODARONE
  7. WARFARIN [Concomitant]
     Active Substance: WARFARIN
  8. VALSARTAN. [Concomitant]
     Active Substance: VALSARTAN
  9. FLAXSEED [Concomitant]
     Active Substance: FLAX SEED
  10. MULTAQ [Suspect]
     Active Substance: DRONEDARONE
     Indication: ATRIAL FIBRILLATION
     Dosage: ?          QUANTITY:PILL;OTHER FREQUENCY:1-AM  - 1-PM;?
     Route: 048
     Dates: start: 20190729, end: 20190927
  11. FISH OIL [Concomitant]
     Active Substance: FISH OIL

REACTIONS (4)
  - Presyncope [None]
  - Lung disorder [None]
  - Dyspnoea exertional [None]
  - Dizziness [None]

NARRATIVE: CASE EVENT DATE: 20190830
